FAERS Safety Report 9613690 (Version 1)
Quarter: 2013Q4

REPORT INFORMATION
  Report Type: Spontaneous
  Country: GB (occurrence: GB)
  Receive Date: 20131010
  Receipt Date: 20131010
  Transmission Date: 20140711
  Serious: Yes (Hospitalization)
  Sender: FDA-Public Use
  Company Number: GB-ACTAVIS-2013-18209

PATIENT
  Age: 73 Year
  Sex: Female

DRUGS (2)
  1. QUETIAPINE (UNKNOWN) [Suspect]
     Indication: PARANOIA
     Dosage: 25 MG, UNKNOWN
     Route: 048
     Dates: start: 20130823, end: 20130902
  2. CLINDAMYCIN [Concomitant]
     Indication: CELLULITIS
     Dosage: UNK
     Route: 048
     Dates: start: 20130823, end: 20130830

REACTIONS (5)
  - Renal failure acute [Recovered/Resolved]
  - Toxic skin eruption [Recovered/Resolved]
  - Angioedema [Recovered/Resolved]
  - Confusional state [Recovered/Resolved]
  - Eosinophilia [Recovered/Resolved]
